FAERS Safety Report 8805147 (Version 1)
Quarter: 2012Q4

REPORT INFORMATION
  Report Type: Spontaneous
  Country: US (occurrence: None)
  Receive Date: 20120919
  Receipt Date: 20120919
  Transmission Date: 20130627
  Serious: Yes (Other)
  Sender: FDA-Public Use
  Company Number: None

PATIENT
  Age: 59 Year
  Sex: Female
  Weight: 64.86 kg

DRUGS (2)
  1. ESTRACE [Suspect]
     Indication: VAGINAL DRYNESS
     Dosage: 1/2 applicatorful -2 grams-   3 Times Per Week  vag
     Route: 067
     Dates: start: 20101001, end: 20120918
  2. ESTRACE [Suspect]
     Indication: VAGINAL DISCOMFORT
     Dosage: 1/2 applicatorful -2 grams-   3 Times Per Week  vag
     Route: 067
     Dates: start: 20101001, end: 20120918

REACTIONS (2)
  - Product packaging quantity issue [None]
  - Device malfunction [None]
